FAERS Safety Report 12708730 (Version 2)
Quarter: 2016Q3

REPORT INFORMATION
  Report Type: Spontaneous
  Country: JP (occurrence: JP)
  Receive Date: 20160901
  Receipt Date: 20160915
  Transmission Date: 20161109
  Serious: Yes (Death)
  Sender: FDA-Public Use
  Company Number: JP-ASTRAZENECA-2016SE92221

PATIENT
  Age: 61 Year
  Sex: Male

DRUGS (2)
  1. LEUPLIN [Concomitant]
     Active Substance: LEUPROLIDE ACETATE
     Dosage: DOSE UNKNOWN
     Route: 065
     Dates: start: 200901
  2. CASODEX [Suspect]
     Active Substance: BICALUTAMIDE
     Indication: SKIN CANCER
     Route: 048
     Dates: start: 200901, end: 200902

REACTIONS (2)
  - Cardiac failure [Fatal]
  - Cardiomyopathy [Fatal]

NARRATIVE: CASE EVENT DATE: 200902
